FAERS Safety Report 7786822-8 (Version None)
Quarter: 2011Q3

REPORT INFORMATION
  Report Type: 
  Country: None (occurrence: None)
  Receive Date: 20110929
  Receipt Date: 20110920
  Transmission Date: 20111222
  Serious: Yes (Life-Threatening, Hospitalization, Other)
  Sender: FDA-Public Use
  Company Number: DE-TEVA-301561GER

PATIENT
  Age: 88 Year
  Sex: Female
  Weight: 61 kg

DRUGS (4)
  1. CLARITHROMYCIN [Suspect]
     Dosage: 300 MILLIGRAM;
     Route: 042
     Dates: start: 20110716, end: 20110716
  2. CLARITHROMYCIN [Suspect]
     Dosage: 500 MILLIGRAM;
     Route: 048
     Dates: start: 20110716, end: 20110718
  3. METOCLOPRAMIDE [Suspect]
     Dosage: 1 DOSAGE FORMS;
     Route: 042
     Dates: start: 20110715, end: 20110715
  4. CLARITHROMYCIN [Suspect]
     Dosage: 500 MILLIGRAM;
     Route: 048
     Dates: start: 20110715, end: 20110715

REACTIONS (5)
  - ATRIAL FIBRILLATION [None]
  - PNEUMONIA [None]
  - ASTHENIA [None]
  - LONG QT SYNDROME [None]
  - TORSADE DE POINTES [None]
